FAERS Safety Report 9739438 (Version 4)
Quarter: 2014Q2

REPORT INFORMATION
  Report Type: Report from Study
  Country: FR (occurrence: FR)
  Receive Date: 20131209
  Receipt Date: 20140527
  Transmission Date: 20141212
  Serious: Yes (Hospitalization)
  Sender: FDA-Public Use
  Company Number: FR-UCBSA-104597

PATIENT
  Sex: Female
  Weight: 47 kg

DRUGS (21)
  1. CIMZIA [Suspect]
     Indication: RHEUMATOID ARTHRITIS
     Dosage: UNKNOWN DOSE
     Route: 058
     Dates: start: 2014, end: 20140512
  2. CIMZIA [Suspect]
     Indication: RHEUMATOID ARTHRITIS
     Route: 058
     Dates: start: 20121113, end: 201312
  3. CORTANCYL [Concomitant]
     Indication: RHEUMATOID ARTHRITIS
     Route: 048
     Dates: start: 201104
  4. FUMAFER [Concomitant]
     Indication: IRON DEFICIENCY
     Route: 048
     Dates: start: 201210
  5. MIRCERA [Concomitant]
     Indication: RENAL FAILURE
     Route: 048
     Dates: start: 201203
  6. RENAGEL [Concomitant]
     Indication: HYPERPHOSPHATAEMIA
     Route: 048
     Dates: start: 201209
  7. CRESTOR [Concomitant]
     Indication: HYPERCHOLESTEROLAEMIA
     Route: 048
     Dates: start: 1990
  8. LOXEN [Concomitant]
     Indication: HYPERTENSION
     Route: 048
     Dates: start: 20131013, end: 201312
  9. LOXEN [Concomitant]
     Indication: HYPERTENSION
     Dates: start: 201312
  10. LOPRESSOR [Concomitant]
     Indication: HYPERTENSION
     Route: 048
     Dates: start: 20131013, end: 20131121
  11. IMUREL [Concomitant]
     Indication: RHEUMATOID ARTHRITIS
     Dosage: 50 MG DAILY
     Route: 048
     Dates: start: 200911
  12. MOPRAL [Concomitant]
     Indication: PROPHYLAXIS AGAINST GASTROINTESTINAL ULCER
     Dosage: 20 MG DAILY
     Dates: start: 1991, end: 20131119
  13. UVEDOSE 100000 IU [Concomitant]
     Indication: OSTEOPOROSIS PROPHYLAXIS
     Dosage: 1 UNIT EVERY 4 MONTHS
     Route: 048
     Dates: start: 2000
  14. LASILIX [Concomitant]
     Indication: RENAL FAILURE
     Dates: start: 201312
  15. ALPRESS [Concomitant]
     Indication: HYPERTENSION
     Dosage: 2.5MG DAILY
     Dates: start: 20131121, end: 201312
  16. TEMERIT [Concomitant]
     Indication: HYPERTENSION
     Dosage: 1.25MG DAILY
     Dates: start: 20131121, end: 201312
  17. TEMERIT [Concomitant]
     Indication: HYPERTENSION
     Dosage: 5MG DAILY
     Dates: start: 201312
  18. FOSRENOL [Concomitant]
     Indication: HYPERPHOSPHATAEMIA
     Dates: start: 201312
  19. HEXATRIONE [Concomitant]
     Indication: RHEUMATOID ARTHRITIS
     Dosage: 3.75MG
     Dates: start: 20130212, end: 20130212
  20. CALCIPARINE [Concomitant]
     Indication: THROMBOSIS PROPHYLAXIS
     Dates: start: 20130212, end: 20130220
  21. KAYEXALATE [Concomitant]
     Indication: HYPERKALAEMIA
     Dosage: 1 SPOON
     Dates: start: 20130212, end: 201302

REACTIONS (3)
  - Pyelonephritis [Recovered/Resolved]
  - Pharyngitis [Recovered/Resolved]
  - Oral candidiasis [Recovered/Resolved]
